FAERS Safety Report 8390094 (Version 2)
Quarter: 2013Q2

REPORT INFORMATION
  Report Type: Spontaneous
  Country: US (occurrence: None)
  Receive Date: 20111221
  Receipt Date: 20121227
  Transmission Date: 20140414
  Serious: Yes (Hospitalization)
  Sender: FDA-Public Use
  Company Number: PHHY2011US17043

PATIENT
  Age: 27 Year
  Sex: Male
  Weight: 63.6 kg

DRUGS (4)
  1. EXJADE [Suspect]
     Indication: SICKLE CELL ANAEMIA WITH CRISIS
     Dosage: 1125 MG, QD, ORAL, 1250 MG DAILY, ORAL
     Route: 048
     Dates: start: 20110225
  2. EXJADE [Suspect]
     Indication: IRON OVERLOAD
     Dosage: 1125 MG, QD, ORAL, 1250 MG DAILY, ORAL
     Route: 048
     Dates: start: 20110225
  3. HYDROCODONE (HYDROCODONE) [Concomitant]
  4. HYDROXYUREA [Concomitant]

REACTIONS (4)
  - SICKLE CELL ANAEMIA WITH CRISIS [None]
  - DIARRHOEA [None]
  - FATIGUE [None]
  - PAIN [None]
